FAERS Safety Report 6146389-7 (Version None)
Quarter: 2009Q2

REPORT INFORMATION
  Report Type: 
  Country: None (occurrence: None)
  Receive Date: 20090403
  Receipt Date: 20090403
  Transmission Date: 20091009
  Serious: Yes (Other)
  Sender: FDA-Public Use
  Company Number: None

PATIENT
  Sex: Female
  Weight: 70.3075 kg

DRUGS (4)
  1. PREDNISONE [Suspect]
     Indication: POLYMYALGIA RHEUMATICA
     Dosage: 20 MG TAB QD ORAL
     Route: 048
     Dates: start: 20090218
  2. PREDNISONE [Suspect]
     Indication: POLYMYALGIA RHEUMATICA
     Dosage: 20 MG TAB QD ORAL
     Route: 048
     Dates: start: 20090219
  3. PREDNISONE [Suspect]
     Indication: POLYMYALGIA RHEUMATICA
     Dosage: 20 MG TAB QD ORAL
     Route: 048
     Dates: start: 20090220
  4. PREDNISONE [Suspect]
     Indication: POLYMYALGIA RHEUMATICA
     Dosage: 20 MG TAB QD ORAL
     Route: 048
     Dates: start: 20090221

REACTIONS (6)
  - DIZZINESS [None]
  - DRY MOUTH [None]
  - DYSARTHRIA [None]
  - NAUSEA [None]
  - TONGUE DISORDER [None]
  - VOMITING [None]
